FAERS Safety Report 16544130 (Version 1)
Quarter: 2019Q3

REPORT INFORMATION
  Report Type: Spontaneous
  Country: CA (occurrence: CA)
  Receive Date: 20190709
  Receipt Date: 20190709
  Transmission Date: 20191004
  Serious: Yes (Hospitalization, Other)
  Sender: FDA-Public Use
  Company Number: CA-APOTEX-2019AP018038

PATIENT
  Age: 44 Year
  Sex: Female

DRUGS (10)
  1. VORICONAZOLE. [Concomitant]
     Active Substance: VORICONAZOLE
     Indication: ACANTHAMOEBA KERATITIS
     Dosage: UNK UNK, Q.H.S.
     Route: 061
  2. POLYHEXAMETHYLENE BIGUANIDE HYDROCHLORIDE [Concomitant]
     Active Substance: POLIHEXANIDE HYDROCHLORIDE
     Indication: ACANTHAMOEBA KERATITIS
     Dosage: 0.02 %, Q.H.
     Route: 047
  3. MILTEFOSINE [Suspect]
     Active Substance: MILTEFOSINE
     Indication: ACANTHAMOEBA KERATITIS
     Dosage: 50 MG, TID
     Route: 065
  4. DEXAMETHASONE. [Concomitant]
     Active Substance: DEXAMETHASONE
     Indication: ACANTHAMOEBA KERATITIS
     Dosage: UNK
     Route: 047
  5. CHLORHEXIDINE [Concomitant]
     Active Substance: CHLORHEXIDINE
     Indication: ACANTHAMOEBA KERATITIS
     Dosage: UNK UNK, Q.H.
     Route: 047
  6. PREDNISOLONE ACETATE. [Concomitant]
     Active Substance: PREDNISOLONE ACETATE
     Indication: ACANTHAMOEBA KERATITIS
     Dosage: 1 %, QID
     Route: 047
  7. TOBRAMYCIN. [Suspect]
     Active Substance: TOBRAMYCIN
     Indication: ACANTHAMOEBA KERATITIS
     Dosage: UNK
     Route: 047
  8. VORICONAZOLE. [Suspect]
     Active Substance: VORICONAZOLE
     Indication: ACANTHAMOEBA KERATITIS
     Dosage: UNK UNK, BID
     Route: 048
  9. GATIFLOXACIN. [Suspect]
     Active Substance: GATIFLOXACIN
     Indication: ACANTHAMOEBA KERATITIS
     Dosage: UNK UNK, QID
     Route: 047
  10. MILTEFOSINE [Suspect]
     Active Substance: MILTEFOSINE
     Dosage: 50 MG, BID
     Route: 065

REACTIONS (4)
  - Decreased appetite [Unknown]
  - Electrolyte imbalance [Unknown]
  - Drug ineffective [Unknown]
  - Treatment noncompliance [Unknown]
